FAERS Safety Report 7301477-4 (Version None)
Quarter: 2011Q1

REPORT INFORMATION
  Report Type: 
  Country: None (occurrence: None)
  Receive Date: 20110208
  Receipt Date: 20110128
  Transmission Date: 20110831
  Serious: Yes (Death)
  Sender: FDA-Public Use
  Company Number: 2010JP005848

PATIENT
  Age: 10 Year
  Sex: Male
  Weight: 28.6 kg

DRUGS (11)
  1. PROGRAF [Suspect]
     Indication: PROPHYLAXIS AGAINST GRAFT VERSUS HOST DISEASE
     Dosage: 0.6 MG, UID/QD, IV DRIP; 0.3 MG, UID/QD, IV DRIP
     Route: 041
     Dates: start: 20090408, end: 20090503
  2. PROGRAF [Suspect]
     Indication: PROPHYLAXIS AGAINST GRAFT VERSUS HOST DISEASE
     Dosage: 0.6 MG, UID/QD, IV DRIP; 0.3 MG, UID/QD, IV DRIP
     Route: 041
     Dates: start: 20090504, end: 20090511
  3. THYMOGLOBULIN [Concomitant]
  4. ETOPOSIDE [Concomitant]
  5. METHYLPREDNISOLONE [Concomitant]
  6. FLUDARABINE (FLUDARABINE) FORMULATION UNKNOWN [Concomitant]
  7. GANCICLOVIR (GANCICLOVIR) FORMULATION UNKNOWN [Concomitant]
  8. L-PAM (MELPHALAN) FORMULATION UNKNOWN [Concomitant]
  9. METHOTREXATE [Concomitant]
  10. CYTARABINE (CYTARABINE) FORMULATION UNKNOWN [Concomitant]
  11. CYCLOPHOSPHAMIDE [Concomitant]

REACTIONS (3)
  - PULMONARY OEDEMA [None]
  - RESPIRATORY FAILURE [None]
  - PNEUMONIA CYTOMEGALOVIRAL [None]
